FAERS Safety Report 8977030 (Version 1)
Quarter: 2012Q4

REPORT INFORMATION
  Report Type: Report from Study
  Country: RU (occurrence: RU)
  Receive Date: 20121220
  Receipt Date: 20121220
  Transmission Date: 20130627
  Serious: Yes (Life-Threatening)
  Sender: FDA-Public Use
  Company Number: RU-TEVA-376234ISR

PATIENT
  Age: 67 Year
  Sex: Female
  Weight: 58 kg

DRUGS (9)
  1. 5-FLUOROURACIL [Suspect]
     Indication: BREAST CANCER
     Route: 042
     Dates: start: 20081014
  2. 5-FLUOROURACIL [Suspect]
     Dates: start: 20081111
  3. TRASTUZUMAB [Suspect]
     Indication: BREAST CANCER
     Route: 042
     Dates: start: 20080617
  4. TRASTUZUMAB [Suspect]
     Route: 042
     Dates: start: 20080718
  5. DOCETAXEL [Suspect]
     Dosage: Dose: 75/100 MG/M^2, FREQUENCY:39WK
     Route: 042
     Dates: start: 20080611
  6. EPIRUBICIN [Suspect]
     Route: 042
     Dates: start: 20081014
  7. EPIRUBICIN [Suspect]
     Route: 042
     Dates: start: 20081111
  8. CYCLOPHOSPHAMIDE [Suspect]
     Route: 042
     Dates: start: 20081014
  9. CYCLOPHOSPHAMIDE [Suspect]
     Route: 042
     Dates: start: 20081111

REACTIONS (1)
  - Febrile neutropenia [Recovered/Resolved]
